FAERS Safety Report 14624983 (Version 1)
Quarter: 2018Q1

REPORT INFORMATION
  Report Type: Spontaneous
  Country: US (occurrence: US)
  Receive Date: 20180310
  Receipt Date: 20180310
  Transmission Date: 20180509
  Serious: Yes (Hospitalization)
  Sender: FDA-Public Use
  Company Number: None

PATIENT
  Age: 60 Year
  Sex: Female

DRUGS (1)
  1. LETAIRIS [Suspect]
     Active Substance: AMBRISENTAN
     Indication: SCLERODERMA
     Route: 048
     Dates: start: 201602

REACTIONS (6)
  - Traumatic haematoma [None]
  - Fall [None]
  - Syncope [None]
  - Haemorrhage [None]
  - Infection [None]
  - Post concussion syndrome [None]

NARRATIVE: CASE EVENT DATE: 20180222
